FAERS Safety Report 8873948 (Version 4)
Quarter: 2013Q4

REPORT INFORMATION
  Report Type: Spontaneous
  Country: US (occurrence: US)
  Receive Date: 20121030
  Receipt Date: 20131111
  Transmission Date: 20140711
  Serious: Yes (Hospitalization, Disabling, Other)
  Sender: FDA-Public Use
  Company Number: US-009507513-1210USA008666

PATIENT
  Sex: Female
  Weight: 54.42 kg

DRUGS (2)
  1. FOSAMAX [Suspect]
     Indication: OSTEOPOROSIS
     Dosage: 70 MG, QW
     Route: 048
     Dates: start: 2004
  2. ALENDRONATE SODIUM [Suspect]
     Indication: OSTEOPOROSIS
     Dosage: 70 MG, UNK
     Dates: start: 20100216, end: 20100311

REACTIONS (27)
  - Femur fracture [Not Recovered/Not Resolved]
  - Femur fracture [Not Recovered/Not Resolved]
  - Low turnover osteopathy [Not Recovered/Not Resolved]
  - Osteoporosis [Not Recovered/Not Resolved]
  - Stress fracture [Not Recovered/Not Resolved]
  - Humerus fracture [Unknown]
  - Adverse event [Unknown]
  - Femur fracture [Unknown]
  - Liposarcoma recurrent [Unknown]
  - Accident at work [Unknown]
  - Vitamin D deficiency [Unknown]
  - Calcium deficiency [Unknown]
  - Radiotherapy [Unknown]
  - Joint effusion [Unknown]
  - Synovitis [Unknown]
  - Cough [Recovering/Resolving]
  - Rhinorrhoea [Unknown]
  - Fatigue [Unknown]
  - Wound dehiscence [Unknown]
  - Wound abscess [Unknown]
  - Hysterectomy [Unknown]
  - Pharyngitis [Unknown]
  - Varicose vein [Unknown]
  - Sarcoma excision [Unknown]
  - Uterine prolapse [Unknown]
  - Melanocytic naevus [Unknown]
  - Goitre [Unknown]
